FAERS Safety Report 23683937 (Version 1)
Quarter: 2024Q1

REPORT INFORMATION
  Report Type: Spontaneous
  Country: JP (occurrence: JP)
  Receive Date: 20240328
  Receipt Date: 20240328
  Transmission Date: 20240410
  Serious: Yes (Death, Other)
  Sender: FDA-Public Use
  Company Number: CN-BRISTOL-MYERS SQUIBB COMPANY-2024-047961

PATIENT
  Age: 84 Year
  Sex: Female

DRUGS (5)
  1. AZACITIDINE [Suspect]
     Active Substance: AZACITIDINE
     Indication: Acute promyelocytic leukaemia
     Dosage: ON  DAYS  1  TO  7
  2. VENETOCLAX [Suspect]
     Active Substance: VENETOCLAX
     Indication: Acute promyelocytic leukaemia
     Dosage: 50MG/BODY  ON  DAY1
  3. VENETOCLAX [Suspect]
     Active Substance: VENETOCLAX
     Dosage: 100MG/BODY  ON  DAY2
  4. VENETOCLAX [Suspect]
     Active Substance: VENETOCLAX
     Dosage: 200MG/BODY ON DAYS 3 TO 28
  5. FLUCONAZOLE [Concomitant]
     Active Substance: FLUCONAZOLE
     Indication: Acute promyelocytic leukaemia

REACTIONS (1)
  - Gastrointestinal haemorrhage [Fatal]
